FAERS Safety Report 7457730-7 (Version None)
Quarter: 2011Q1

REPORT INFORMATION
  Report Type: 
  Country: None (occurrence: None)
  Receive Date: 20110302
  Receipt Date: 20100902
  Transmission Date: 20110831
  Serious: Yes (Death, Hospitalization)
  Sender: FDA-Public Use
  Company Number: 163-21880-10090265

PATIENT
  Age: 72 Year
  Sex: Female

DRUGS (13)
  1. REVLIMID [Suspect]
     Indication: MULTIPLE MYELOMA
     Dosage: 10 MG, 1 IN 1 D, PO, 10 MG, 1 IN 1 D, PO
     Route: 048
     Dates: start: 20080214, end: 20090201
  2. REVLIMID [Suspect]
     Indication: MULTIPLE MYELOMA
     Dosage: 10 MG, 1 IN 1 D, PO, 10 MG, 1 IN 1 D, PO
     Route: 048
     Dates: start: 20090401, end: 20090901
  3. INSULIN (INSULIN) [Concomitant]
  4. FUROSEMIDE [Concomitant]
  5. METOLAZONE [Concomitant]
  6. MULTIVITAMIN [Concomitant]
  7. OMEPRAZOLE [Concomitant]
  8. DECADRON [Concomitant]
  9. POTASSIUM (POTASSIUM) [Concomitant]
  10. LEVOTHYROID (LEVOTHYROXINE SODIUM) [Concomitant]
  11. COLACE (DOCUSATE SODIUM) [Concomitant]
  12. MIDODRINE HYDROCHLORIDE [Concomitant]
  13. LISINOPRIL [Concomitant]

REACTIONS (2)
  - DEATH [None]
  - PNEUMONIA [None]
